FAERS Safety Report 6480565-9 (Version None)
Quarter: 2009Q4

REPORT INFORMATION
  Report Type: 
  Country: None (occurrence: None)
  Receive Date: 20091208
  Receipt Date: 20091125
  Transmission Date: 20100525
  Serious: Yes (Hospitalization)
  Sender: FDA-Public Use
  Company Number: US-RB-018907-09

PATIENT
  Age: 55 Year
  Sex: Male

DRUGS (1)
  1. SUBOXONE [Suspect]
     Indication: DRUG USE FOR UNKNOWN INDICATION
     Dosage: DOSAGE INFORMATION UNKNOWN
     Route: 065

REACTIONS (10)
  - APNOEA [None]
  - CONSTIPATION [None]
  - DYSPNOEA [None]
  - ERECTILE DYSFUNCTION [None]
  - INGROWING NAIL [None]
  - NAIL INFECTION [None]
  - OXYGEN SATURATION DECREASED [None]
  - SLEEP STUDY [None]
  - THYROID DISORDER [None]
  - VISION BLURRED [None]
